FAERS Safety Report 7402473-9 (Version None)
Quarter: 2011Q2

REPORT INFORMATION
  Report Type: 
  Country: None (occurrence: None)
  Receive Date: 20110408
  Receipt Date: 20110328
  Transmission Date: 20111010
  Serious: Yes (Other)
  Sender: FDA-Public Use
  Company Number: PHHO2011US05570

PATIENT
  Sex: Female
  Weight: 84 kg

DRUGS (10)
  1. CELEBREX [Concomitant]
  2. TRIAMTERENE AND HYDROCHLOROTHIAZID [Concomitant]
  3. IBUPROFEN [Concomitant]
  4. DITROPAN [Concomitant]
  5. FLOMAX [Concomitant]
  6. DDAVP [Concomitant]
  7. PROCARDIA [Concomitant]
  8. PRAVACHOL [Concomitant]
  9. GILENYA [Suspect]
     Dosage: DOSE BLINDED
     Route: 048
     Dates: start: 20100224
  10. ACETAMINOPHEN [Concomitant]

REACTIONS (1)
  - SQUAMOUS CELL CARCINOMA [None]
